FAERS Safety Report 4508982-4 (Version None)
Quarter: 2004Q4

REPORT INFORMATION
  Report Type: 
  Country: None (occurrence: None)
  Receive Date: 20041122
  Receipt Date: 20041122
  Transmission Date: 20050328
  Serious: Yes (Hospitalization)
  Sender: FDA-Public Use
  Company Number: None

PATIENT
  Age: 77 Year
  Sex: Male
  Weight: 82 kg

DRUGS (2)
  1. WARFARIN SODIUM [Suspect]
     Indication: ATRIAL FIBRILLATION
     Dosage: 7.5 MG QD X 6 DAYS/WK ORAL
     Route: 048
     Dates: start: 20040428, end: 20040830
  2. WARFARIN SODIUM [Suspect]
     Dosage: 10 MG QD X 6 DAYS/WK ORAL
     Route: 048
     Dates: start: 20040428, end: 20040830

REACTIONS (1)
  - LOWER GASTROINTESTINAL HAEMORRHAGE [None]
